FAERS Safety Report 4767581-X (Version None)
Quarter: 2005Q3

REPORT INFORMATION
  Report Type: 
  Country: None (occurrence: None)
  Receive Date: 20050913
  Receipt Date: 20050902
  Transmission Date: 20060218
  Serious: Yes (Other)
  Sender: FDA-Public Use
  Company Number: GB-JNJFOC-20050902204

PATIENT
  Sex: Female

DRUGS (2)
  1. TRAMADOL HYDROCHLORIDE [Suspect]
     Indication: PAIN
     Dosage: 50MG 1-2 DAILY.
     Route: 048
  2. CITALOPRAM [Interacting]
     Indication: DEPRESSION
     Route: 048

REACTIONS (3)
  - BALANCE DISORDER [None]
  - DRUG INTERACTION [None]
  - GAIT DISTURBANCE [None]
